FAERS Safety Report 14196207 (Version 3)
Quarter: 2017Q4

REPORT INFORMATION
  Report Type: Spontaneous
  Country: DE (occurrence: DE)
  Receive Date: 20171116
  Receipt Date: 20171208
  Transmission Date: 20180321
  Serious: Yes (Other)
  Sender: FDA-Public Use
  Company Number: DE-JNJFOC-20171116334

PATIENT
  Age: 79 Year
  Sex: Male
  Weight: 88 kg

DRUGS (2)
  1. XARELTO [Suspect]
     Active Substance: RIVAROXABAN
     Indication: ATRIAL FIBRILLATION
     Route: 048
  2. CLEXANE [Concomitant]
     Active Substance: ENOXAPARIN SODIUM
     Route: 065

REACTIONS (8)
  - Traumatic haemorrhage [Recovered/Resolved]
  - Penile haemorrhage [Recovered/Resolved]
  - Jaundice [Recovered/Resolved]
  - Intra-abdominal haemorrhage [Recovered/Resolved]
  - Testicular haemorrhage [Recovered/Resolved]
  - Soft tissue haemorrhage [Recovered/Resolved]
  - Fall [Recovered/Resolved]
  - Anaemia [Recovered/Resolved]

NARRATIVE: CASE EVENT DATE: 20170901
